FAERS Safety Report 19253225 (Version 1)
Quarter: 2021Q2

REPORT INFORMATION
  Report Type: Spontaneous
  Country: US (occurrence: US)
  Receive Date: 20210513
  Receipt Date: 20210513
  Transmission Date: 20210717
  Serious: Yes (Other)
  Sender: FDA-Public Use
  Company Number: US-APOTEX-2021AP011591

PATIENT
  Age: 13 Year
  Sex: Female

DRUGS (1)
  1. LEVODOPA/CARBIDOPA [Suspect]
     Active Substance: CARBIDOPA\LEVODOPA
     Indication: PARKINSONISM
     Dosage: 10/100 MG, TID
     Route: 065

REACTIONS (2)
  - Dyskinesia [Recovering/Resolving]
  - Dizziness postural [Unknown]
